FAERS Safety Report 23552501 (Version 1)
Quarter: 2024Q1

REPORT INFORMATION
  Report Type: Spontaneous
  Country: US (occurrence: US)
  Receive Date: 20240222
  Receipt Date: 20240222
  Transmission Date: 20240409
  Serious: No
  Sender: FDA-Public Use
  Company Number: US-HALEON-USCH2024009156

PATIENT

DRUGS (1)
  1. ADVIL PM (DIPHENHYDRAMINE CITRATE\IBUPROFEN) [Suspect]
     Active Substance: DIPHENHYDRAMINE CITRATE\IBUPROFEN
     Indication: Pain in extremity
     Dosage: 1 DF, QD (ONE PILL LAST NIGHT AT BED TIME)
     Dates: start: 20240217

REACTIONS (1)
  - Dizziness [Unknown]

NARRATIVE: CASE EVENT DATE: 20240217
